FAERS Safety Report 8290796-3 (Version None)
Quarter: 2012Q2

REPORT INFORMATION
  Report Type: 
  Country: None (occurrence: None)
  Receive Date: 20120413
  Receipt Date: 20120413
  Transmission Date: 20120825
  Serious: Yes (Life-Threatening, Other)
  Sender: FDA-Public Use
  Company Number: None

PATIENT
  Sex: Male
  Weight: 79.3795 kg

DRUGS (2)
  1. CLONAZEPAM [Suspect]
     Indication: ANXIETY
     Dosage: 1/2 MG 1 OR 2 DAILY ORAL
     Route: 048
     Dates: start: 20111201, end: 20120201
  2. CLONAZEPAM [Suspect]
     Indication: MENIERE'S DISEASE
     Dosage: 1/2 MG 1 OR 2 DAILY ORAL
     Route: 048
     Dates: start: 20111201, end: 20120201

REACTIONS (4)
  - DYSPNOEA [None]
  - PRODUCT SUBSTITUTION ISSUE [None]
  - DYSPHAGIA [None]
  - ABDOMINAL PAIN UPPER [None]
